FAERS Safety Report 8604547-3 (Version None)
Quarter: 2012Q3

REPORT INFORMATION
  Report Type: 
  Country: None (occurrence: None)
  Receive Date: 20120820
  Receipt Date: 20120810
  Transmission Date: 20120928
  Serious: Yes (Other)
  Sender: FDA-Public Use
  Company Number: ES-BAYER-2012-081044

PATIENT
  Age: 22 Year
  Sex: Male

DRUGS (3)
  1. NEXAVAR [Suspect]
     Dosage: 200 MG, BID
     Route: 048
     Dates: start: 20090101
  2. NEXAVAR [Suspect]
     Indication: ANGIOSARCOMA
     Dosage: 400 MG, BID
     Route: 048
     Dates: start: 20091001
  3. NEXAVAR [Suspect]
     Dosage: 200 MG, EVERY 36 HOURS
     Route: 048
     Dates: start: 20110101

REACTIONS (5)
  - MUCOSAL INFLAMMATION [None]
  - ERYTHEMA MULTIFORME [None]
  - PALMAR-PLANTAR ERYTHRODYSAESTHESIA SYNDROME [None]
  - PULMONARY TUBERCULOSIS [None]
  - ALOPECIA [None]
